FAERS Safety Report 11626846 (Version 1)
Quarter: 2015Q4

REPORT INFORMATION
  Report Type: Spontaneous
  Country: US (occurrence: None)
  Receive Date: 20151013
  Receipt Date: 20151013
  Transmission Date: 20160304
  Serious: Yes (Hospitalization, Other)
  Sender: FDA-Public Use
  Company Number: US-MDT-ADR-2015-01949

PATIENT
  Age: 49 Year
  Sex: Male

DRUGS (2)
  1. LIORESAL [Suspect]
     Active Substance: BACLOFEN
     Indication: MUSCLE SPASTICITY
     Dosage: 160.08MCG/DAY
  2. BUPIVACAINE (INTRATHECAL) 7.8MG/ML [Suspect]
     Active Substance: BUPIVACAINE
     Indication: BURNING SENSATION
     Dosage: 2.4973MG/DAY

REACTIONS (10)
  - Pain [None]
  - Amnesia [None]
  - Lower limb fracture [None]
  - Concussion [None]
  - Head injury [None]
  - Local swelling [None]
  - Muscle spasms [None]
  - Wound haemorrhage [None]
  - Disorientation [None]
  - Road traffic accident [None]
